FAERS Safety Report 6265282-2 (Version None)
Quarter: 2009Q3

REPORT INFORMATION
  Report Type: 
  Country: None (occurrence: None)
  Receive Date: 20090709
  Receipt Date: 20090709
  Transmission Date: 20100115
  Serious: Yes (Other)
  Sender: FDA-Public Use
  Company Number: None

PATIENT
  Age: 65 Year
  Sex: Female
  Weight: 73.0291 kg

DRUGS (1)
  1. VERAPAMIL SR 300MG UNKNOWN [Suspect]
     Indication: HYPERTENSION
     Dosage: 1 PILL DAILY PO
     Route: 048
     Dates: start: 20090303, end: 20090614

REACTIONS (3)
  - DIZZINESS [None]
  - MALAISE [None]
  - OEDEMA PERIPHERAL [None]
